FAERS Safety Report 5642810-9 (Version None)
Quarter: 2008Q1

REPORT INFORMATION
  Report Type: 
  Country: None (occurrence: None)
  Receive Date: 20080131
  Receipt Date: 20071017
  Transmission Date: 20080703
  Serious: Yes (Other)
  Sender: FDA-Public Use
  Company Number: PHEH2007US13723

PATIENT
  Sex: Female

DRUGS (1)
  1. TEKTURNA [Suspect]
     Dosage: 2 DOSES
     Dates: start: 20070601

REACTIONS (3)
  - ABDOMINAL DISTENSION [None]
  - DIZZINESS [None]
  - SWELLING FACE [None]
